FAERS Safety Report 9843586 (Version 1)
Quarter: 2013Q4

REPORT INFORMATION
  Report Type: Spontaneous
  Country: US (occurrence: None)
  Receive Date: 20131223
  Receipt Date: 20131223
  Transmission Date: 20140711
  Serious: Yes (Other)
  Sender: FDA-Public Use
  Company Number: 221767LEO

PATIENT
  Sex: Male

DRUGS (1)
  1. PICATO (0.015 %, GEL) [Suspect]
     Indication: ACTINIC KERATOSIS
     Dosage: (DAILY), TOPICAL
     Route: 061
     Dates: start: 20130506

REACTIONS (3)
  - Application site reaction [None]
  - Application site erythema [None]
  - Drug administered at inappropriate site [None]
